FAERS Safety Report 7400285-3 (Version None)
Quarter: 2011Q2

REPORT INFORMATION
  Report Type: 
  Country: None (occurrence: None)
  Receive Date: 20110405
  Receipt Date: 20110405
  Transmission Date: 20111010
  Serious: Yes (Hospitalization)
  Sender: FDA-Public Use
  Company Number: None

PATIENT
  Age: 66 Year
  Sex: Male

DRUGS (13)
  1. GEMFIBROZIL [Suspect]
     Indication: HYPERLIPIDAEMIA
     Dosage: 600MG BID PO
     Route: 048
     Dates: end: 20100715
  2. SIMVASTATIN [Suspect]
     Indication: HYPERLIPIDAEMIA
     Dosage: 40 MG DAILY PO
     Route: 048
     Dates: end: 20100714
  3. AMLODIPINE [Concomitant]
  4. ASPIRIN [Concomitant]
  5. ENALAPRIL MALEATE [Concomitant]
  6. GLYBURIDE [Concomitant]
  7. METOPROLOL SUCCINATE EXTENDED RELEASE [Concomitant]
  8. CYCLOBENAZAPRINE [Concomitant]
  9. METFORMIN HCL [Concomitant]
  10. FUROSEMIDE [Concomitant]
  11. GABAPENTIN [Concomitant]
  12. POTASSIUM CHLORIDE [Concomitant]
  13. NAPROXEN [Concomitant]

REACTIONS (4)
  - GAIT DISTURBANCE [None]
  - RHABDOMYOLYSIS [None]
  - BACK PAIN [None]
  - RENAL FAILURE ACUTE [None]
